FAERS Safety Report 16540580 (Version 1)
Quarter: 2019Q3

REPORT INFORMATION
  Report Type: Spontaneous
  Country: US (occurrence: US)
  Receive Date: 20190708
  Receipt Date: 20190708
  Transmission Date: 20191004
  Serious: No
  Sender: FDA-Public Use
  Company Number: US-NATCO PHARMA-2018NAT00151

PATIENT
  Sex: Male

DRUGS (1)
  1. RIZATRIPTAN. [Suspect]
     Active Substance: RIZATRIPTAN
     Route: 002

REACTIONS (3)
  - Product solubility abnormal [Unknown]
  - Product substitution issue [Unknown]
  - Drug ineffective [Unknown]
